FAERS Safety Report 11810661 (Version 3)
Quarter: 2020Q3

REPORT INFORMATION
  Report Type: Spontaneous
  Country: US (occurrence: US)
  Receive Date: 20151208
  Receipt Date: 20160516
  Transmission Date: 20201104
  Serious: Yes (Hospitalization, Other)
  Sender: FDA-Public Use
  Company Number: US-ELI_LILLY_AND_COMPANY-US201511008577

PATIENT
  Age: 29 Year
  Sex: Female

DRUGS (35)
  1. CYMBALTA [Suspect]
     Active Substance: DULOXETINE HYDROCHLORIDE
     Indication: DEPRESSION
     Dosage: 30 MG, UNKNOWN
     Route: 048
     Dates: start: 20151026
  2. MIRENA [Concomitant]
     Active Substance: LEVONORGESTREL
     Indication: PRODUCT USED FOR UNKNOWN INDICATION
     Dosage: UNK
     Dates: start: 20150204
  3. TRAMADOL. [Concomitant]
     Active Substance: TRAMADOL
  4. VICODIN [Concomitant]
     Active Substance: ACETAMINOPHEN\HYDROCODONE BITARTRATE
  5. DIFLUCAN [Concomitant]
     Active Substance: FLUCONAZOLE
     Indication: PRODUCT USED FOR UNKNOWN INDICATION
     Dosage: UNK, UNKNOWN
     Route: 048
     Dates: start: 20151115, end: 20151118
  6. SULFASALAZINE. [Concomitant]
     Active Substance: SULFASALAZINE
     Indication: COLITIS ULCERATIVE
     Dosage: UNK, UNKNOWN
     Route: 065
  7. ONDASETRON                         /00955301/ [Concomitant]
     Active Substance: ONDANSETRON
     Indication: COLITIS ULCERATIVE
     Dosage: UNK, UNKNOWN
     Route: 065
  8. TIZANIDINE HCL [Concomitant]
     Active Substance: TIZANIDINE HYDROCHLORIDE
  9. VALIUM [Concomitant]
     Active Substance: DIAZEPAM
  10. MECLIZINE [Concomitant]
     Active Substance: MECLIZINE HYDROCHLORIDE
  11. ETROLIZUMAB. [Suspect]
     Active Substance: ETROLIZUMAB
     Indication: COLITIS ULCERATIVE
     Dosage: UNK, UNKNOWN
     Route: 058
     Dates: start: 20141209
  12. FLEXERIL [Concomitant]
     Active Substance: CYCLOBENZAPRINE HYDROCHLORIDE
     Dosage: 5 MG, UNKNOWN
     Route: 048
     Dates: start: 20151026, end: 20151028
  13. LIDOCAINE. [Concomitant]
     Active Substance: LIDOCAINE
     Dosage: UNK
     Route: 058
     Dates: start: 20151002
  14. AFRIN [Concomitant]
     Active Substance: OXYMETAZOLINE
     Indication: PRODUCT USED FOR UNKNOWN INDICATION
     Dosage: 3 GTT, OTHER
     Route: 055
     Dates: start: 20151210
  15. PROPOFOL. [Concomitant]
     Active Substance: PROPOFOL
     Indication: PRODUCT USED FOR UNKNOWN INDICATION
     Dosage: 50 MG, UNKNOWN
     Route: 042
     Dates: start: 20151228, end: 20151228
  16. VOLTAREN [Concomitant]
     Active Substance: DICLOFENAC SODIUM
     Indication: PRODUCT USED FOR UNKNOWN INDICATION
     Dosage: UNK, UNKNOWN
     Route: 061
     Dates: start: 2010
  17. ATIVAN [Concomitant]
     Active Substance: LORAZEPAM
     Dosage: 0.5 UNK, UNK
  18. MUCINEX [Concomitant]
     Active Substance: GUAIFENESIN
  19. LEVOFLOXACIN. [Concomitant]
     Active Substance: LEVOFLOXACIN
  20. PRILOSEC [Concomitant]
     Active Substance: OMEPRAZOLE MAGNESIUM
  21. PERCOCET                           /00446701/ [Concomitant]
     Active Substance: ACETAMINOPHEN\OXYCODONE HYDROCHLORIDE\OXYCODONE TEREPHTHALATE
  22. LEVSIN [Concomitant]
     Active Substance: HYOSCYAMINE SULFATE
  23. AMBIEN [Concomitant]
     Active Substance: ZOLPIDEM TARTRATE
     Indication: PRODUCT USED FOR UNKNOWN INDICATION
     Dosage: 10 MG, UNKNOWN
     Route: 048
     Dates: start: 20151030
  24. TOPAMAX [Concomitant]
     Active Substance: TOPIRAMATE
     Indication: PRODUCT USED FOR UNKNOWN INDICATION
     Dosage: 100 MG, UNKNOWN
     Route: 048
     Dates: start: 2010
  25. FLEXERIL [Concomitant]
     Active Substance: CYCLOBENZAPRINE HYDROCHLORIDE
     Indication: PRODUCT USED FOR UNKNOWN INDICATION
     Dosage: 10 MG, UNKNOWN
     Route: 048
     Dates: start: 20150802, end: 20151015
  26. XANAX [Concomitant]
     Active Substance: ALPRAZOLAM
  27. BUTALBITAL [Concomitant]
     Active Substance: BUTALBITAL
     Indication: PRODUCT USED FOR UNKNOWN INDICATION
     Dosage: 45 MG, UNKNOWN
     Route: 048
     Dates: start: 20151115
  28. CLONAZEPAM. [Concomitant]
     Active Substance: CLONAZEPAM
  29. NEURONTIN [Concomitant]
     Active Substance: GABAPENTIN
  30. FOLIC ACID. [Concomitant]
     Active Substance: FOLIC ACID
     Indication: PRODUCT USED FOR UNKNOWN INDICATION
     Dosage: 1 MG, UNKNOWN
     Route: 048
     Dates: start: 20140901
  31. FENTANYL. [Concomitant]
     Active Substance: FENTANYL
     Indication: PRODUCT USED FOR UNKNOWN INDICATION
     Dosage: 12 MG, UNKNOWN
     Route: 061
     Dates: start: 20151215, end: 20151229
  32. SALINE                             /00075401/ [Concomitant]
     Active Substance: SODIUM CHLORIDE
     Indication: PRODUCT USED FOR UNKNOWN INDICATION
     Dosage: 10 MG, UNKNOWN
     Route: 058
     Dates: start: 20151113, end: 20151113
  33. ALLEGRA [Concomitant]
     Active Substance: FEXOFENADINE HYDROCHLORIDE
     Indication: PRODUCT USED FOR UNKNOWN INDICATION
     Dosage: 180 MG, UNKNOWN
     Route: 048
     Dates: start: 2013
  34. METHYLPREDNISOLONE. [Concomitant]
     Active Substance: METHYLPREDNISOLONE
     Indication: PRODUCT USED FOR UNKNOWN INDICATION
     Dosage: 4 MG, UNKNOWN
     Route: 048
     Dates: start: 20151119, end: 20151125
  35. MARCAINE [Concomitant]
     Active Substance: BUPIVACAINE HYDROCHLORIDE
     Indication: PRODUCT USED FOR UNKNOWN INDICATION
     Dosage: UNK, UNKNOWN
     Route: 058
     Dates: start: 20151202

REACTIONS (20)
  - Clumsiness [Unknown]
  - Dysarthria [Unknown]
  - Affect lability [Unknown]
  - Balance disorder [Unknown]
  - Generalised anxiety disorder [Unknown]
  - Tearfulness [Unknown]
  - Somatic symptom disorder [Unknown]
  - Cerebral disorder [Unknown]
  - Fall [Unknown]
  - Insomnia [Unknown]
  - Blindness transient [Unknown]
  - Post-traumatic stress disorder [Unknown]
  - Dizziness [Not Recovered/Not Resolved]
  - Decreased appetite [Unknown]
  - Nausea [Unknown]
  - Loss of control of legs [Unknown]
  - Nasopharyngitis [Unknown]
  - Irritability [Unknown]
  - Vomiting [Unknown]
  - Visual impairment [Unknown]

NARRATIVE: CASE EVENT DATE: 20151113
